FAERS Safety Report 19970543 (Version 5)
Quarter: 2021Q4

REPORT INFORMATION
  Report Type: Spontaneous
  Country: CA (occurrence: CA)
  Receive Date: 20211019
  Receipt Date: 20211130
  Transmission Date: 20220303
  Serious: Yes (Other)
  Sender: FDA-Public Use
  Company Number: CA-PFIZER INC-2020502312

PATIENT
  Age: 60 Year
  Sex: Male
  Weight: 83.6 kg

DRUGS (5)
  1. RUXIENCE [Suspect]
     Active Substance: RITUXIMAB-PVVR
     Indication: Granulomatosis with polyangiitis
     Dosage: 1000 MG EVERY 14 DAYS X 2 DOSES
     Route: 042
     Dates: start: 20210511
  2. RUXIENCE [Suspect]
     Active Substance: RITUXIMAB-PVVR
     Indication: Microscopic polyangiitis
     Dosage: 1000 MG EVERY 14 DAYS X 2 DOSES
     Route: 042
     Dates: start: 20210525, end: 20210525
  3. RUXIENCE [Suspect]
     Active Substance: RITUXIMAB-PVVR
     Dosage: 760 MG WEEKLY FOR 4 WEEKS
     Route: 042
     Dates: start: 20211027, end: 20211027
  4. RUXIENCE [Suspect]
     Active Substance: RITUXIMAB-PVVR
     Dosage: 760 MG, WEEKLY, FOR 4 WEEKS
     Route: 042
     Dates: start: 20211103, end: 20211103
  5. RUXIENCE [Suspect]
     Active Substance: RITUXIMAB-PVVR
     Dosage: 760 MG, WEEKLY, FOR 4 WEEKS
     Route: 042
     Dates: start: 20211117

REACTIONS (6)
  - Condition aggravated [Unknown]
  - Arthralgia [Not Recovered/Not Resolved]
  - Epistaxis [Not Recovered/Not Resolved]
  - Off label use [Unknown]
  - Off label use [Not Recovered/Not Resolved]
  - Intentional product use issue [Unknown]

NARRATIVE: CASE EVENT DATE: 20210101
